FAERS Safety Report 14142967 (Version 1)
Quarter: 2017Q4

REPORT INFORMATION
  Report Type: Spontaneous
  Country: FR (occurrence: FR)
  Receive Date: 20171030
  Receipt Date: 20171030
  Transmission Date: 20180321
  Serious: Yes (Hospitalization)
  Sender: FDA-Public Use
  Company Number: FR-BAUSCH-BL-2017-030195

PATIENT
  Age: 67 Year
  Sex: Male

DRUGS (20)
  1. OXALIPLATIN. [Suspect]
     Active Substance: OXALIPLATIN
     Dosage: 2ND COURSE?EVERY CYCLE
     Route: 042
     Dates: start: 20170821, end: 20170821
  2. ZARZIO [Concomitant]
     Active Substance: FILGRASTIM
     Indication: PRODUCT USED FOR UNKNOWN INDICATION
     Dates: start: 20170923, end: 20170923
  3. INEXIUM [Concomitant]
     Active Substance: ESOMEPRAZOLE
     Indication: PRODUCT USED FOR UNKNOWN INDICATION
  4. OXALIPLATIN. [Suspect]
     Active Substance: OXALIPLATIN
     Indication: GASTRIC CANCER
     Dosage: FIRST COURSE?EVERY CYCLE
     Route: 042
     Dates: start: 20170807, end: 20170807
  5. OXALIPLATIN. [Suspect]
     Active Substance: OXALIPLATIN
     Dosage: 3RD COURSE?EVERY CYCLE
     Route: 042
     Dates: start: 20170905, end: 20170905
  6. DOCETAXEL. [Suspect]
     Active Substance: DOCETAXEL
     Indication: GASTRIC CANCER
     Dosage: FIRST COURSE?EVERY CYCLE
     Route: 042
     Dates: start: 20170807, end: 20170807
  7. DEDROGYL [Concomitant]
     Active Substance: CALCIFEDIOL
     Indication: PRODUCT USED FOR UNKNOWN INDICATION
  8. DOCETAXEL. [Suspect]
     Active Substance: DOCETAXEL
     Dosage: 3RD COURSE?EVERY CYCLE
     Route: 042
     Dates: start: 20170905, end: 20170905
  9. FLUOROURACIL. [Suspect]
     Active Substance: FLUOROURACIL
     Dosage: 3RD COURSE?EVERY CYCLE
     Route: 042
     Dates: start: 20170905, end: 20170905
  10. FLUOROURACIL. [Suspect]
     Active Substance: FLUOROURACIL
     Dosage: 2ND COURSE?EVERY CYCLE
     Route: 042
     Dates: start: 20170821, end: 20170821
  11. FLUOROURACIL. [Suspect]
     Active Substance: FLUOROURACIL
     Dosage: FOURTH COURSE/CYCLE
     Route: 042
     Dates: start: 20170921, end: 20170921
  12. OXALIPLATIN. [Suspect]
     Active Substance: OXALIPLATIN
     Dosage: FOURTH COURSE/CYCLE, DOSE WAS LOWERED
     Route: 042
     Dates: start: 20170919, end: 20170919
  13. CALCIUM FOLINATE [Suspect]
     Active Substance: LEUCOVORIN CALCIUM
     Indication: GASTRIC CANCER
     Dosage: FIRST COURSE?EVERY CYCLE
     Route: 042
     Dates: start: 20170807, end: 20170807
  14. CALCIUM FOLINATE [Suspect]
     Active Substance: LEUCOVORIN CALCIUM
     Dosage: 2ND COURSE?EVERY CYCLE
     Route: 042
     Dates: start: 20170821, end: 20170821
  15. DOCETAXEL. [Suspect]
     Active Substance: DOCETAXEL
     Dosage: FOURTH COURSE/CYCLE, DOSE WAS LOWERED
     Route: 042
     Dates: start: 20170919, end: 20170919
  16. CALCIUM FOLINATE [Suspect]
     Active Substance: LEUCOVORIN CALCIUM
     Dosage: 3RD COURSE?EVERY CYCLE
     Route: 042
     Dates: start: 20170905, end: 20170905
  17. CALCIUM FOLINATE [Suspect]
     Active Substance: LEUCOVORIN CALCIUM
     Dosage: FOURTH COURSE/CYCLE
     Route: 042
     Dates: start: 20170919, end: 20170919
  18. DOCETAXEL. [Suspect]
     Active Substance: DOCETAXEL
     Dosage: 2ND COURSE?EVERY CYCLE
     Route: 042
     Dates: start: 20170821, end: 20170821
  19. FLUOROURACIL. [Suspect]
     Active Substance: FLUOROURACIL
     Indication: GASTRIC CANCER
     Dosage: FIRST COURSE?EVERY CYCLE
     Route: 042
     Dates: start: 20170807, end: 20170807
  20. EMEND [Concomitant]
     Active Substance: APREPITANT
     Indication: PRODUCT USED FOR UNKNOWN INDICATION

REACTIONS (3)
  - Leukopenia [Recovered/Resolved]
  - Septic shock [Recovering/Resolving]
  - Diarrhoea [Recovering/Resolving]

NARRATIVE: CASE EVENT DATE: 20170919
